FAERS Safety Report 24627745 (Version 2)
Quarter: 2025Q3

REPORT INFORMATION
  Report Type: Report from Study
  Country: AU (occurrence: AU)
  Receive Date: 20241116
  Receipt Date: 20250803
  Transmission Date: 20251020
  Serious: Yes (Other)
  Sender: ALEXION PHARMACEUTICALS
  Company Number: AU-AstraZeneca-CH-00745990A

PATIENT

DRUGS (1)
  1. LYNPARZA [Suspect]
     Active Substance: OLAPARIB

REACTIONS (2)
  - Drug intolerance [Unknown]
  - Disease progression [Unknown]
